FAERS Safety Report 17747256 (Version 1)
Quarter: 2020Q2

REPORT INFORMATION
  Report Type: Spontaneous
  Country: US (occurrence: US)
  Receive Date: 20200505
  Receipt Date: 20200505
  Transmission Date: 20200714
  Serious: No
  Sender: FDA-Public Use
  Company Number: US-BAYER-2020-074159

PATIENT
  Sex: Male
  Weight: 73.02 kg

DRUGS (11)
  1. AMLODIPINE BESYLATE. [Concomitant]
     Active Substance: AMLODIPINE BESYLATE
     Dosage: 5 MG
  2. PAROXETINE. [Concomitant]
     Active Substance: PAROXETINE
     Dosage: 25 MG TAB ER 24H
  3. NEXAVAR [Suspect]
     Active Substance: SORAFENIB
     Indication: HEPATIC CANCER
     Dosage: UNK
  4. LENVIMA [Concomitant]
     Active Substance: LENVATINIB
     Dosage: DAILY DOSE 12 MG(TAKE 3 CAPSULE DAILY)
     Route: 048
     Dates: start: 20200416
  5. PRILOSEC [Concomitant]
     Active Substance: OMEPRAZOLE MAGNESIUM
     Dosage: 20 MG
  6. VITAMINS NOS [Concomitant]
     Active Substance: VITAMINS
  7. LOMOTIL [LOPERAMIDE HYDROCHLORIDE] [Concomitant]
     Dosage: 2.5-0.25 MG
  8. NEXAVAR [Suspect]
     Active Substance: SORAFENIB
     Indication: CHOLANGIOCARCINOMA
  9. VITAMIN B [Concomitant]
     Active Substance: VITAMIN B
     Dosage: 1000 MCG
  10. ASCORBIC ACID. [Concomitant]
     Active Substance: ASCORBIC ACID
     Dosage: 1000 MCG
  11. VITAMIN E NOS [Concomitant]
     Active Substance: .ALPHA.-TOCOPHEROL
     Dosage: 1000 UNIT

REACTIONS (1)
  - Abdominal pain upper [None]
